FAERS Safety Report 8302000-8 (Version None)
Quarter: 2012Q2

REPORT INFORMATION
  Report Type: 
  Country: None (occurrence: None)
  Receive Date: 20120420
  Receipt Date: 20120417
  Transmission Date: 20120825
  Serious: Yes (Hospitalization)
  Sender: FDA-Public Use
  Company Number: PHHY2012FR032763

PATIENT
  Age: 20 Year
  Sex: Male

DRUGS (1)
  1. DOXYCYCLINE [Suspect]
     Indication: ACNE
     Dosage: 100 MG, QD

REACTIONS (4)
  - INTERSTITIAL LUNG DISEASE [None]
  - COUGH [None]
  - PYREXIA [None]
  - NIGHT SWEATS [None]
